FAERS Safety Report 21679675 (Version 3)
Quarter: 2023Q2

REPORT INFORMATION
  Report Type: Spontaneous
  Country: US (occurrence: US)
  Receive Date: 20221205
  Receipt Date: 20230525
  Transmission Date: 20230721
  Serious: No
  Sender: FDA-Public Use
  Company Number: US-BRISTOL-MYERS SQUIBB COMPANY-2022-147203

PATIENT
  Age: 88 Year
  Sex: Female

DRUGS (1)
  1. REVLIMID [Suspect]
     Active Substance: LENALIDOMIDE
     Indication: Product used for unknown indication
     Route: 048
     Dates: start: 201912

REACTIONS (8)
  - White blood cell count decreased [Unknown]
  - Anisocytosis [Unknown]
  - Platelet morphology abnormal [Unknown]
  - Red blood cell abnormality [Unknown]
  - Product dose omission issue [Unknown]
  - Pruritus [Unknown]
  - Pain of skin [Unknown]
  - Infection [Unknown]

NARRATIVE: CASE EVENT DATE: 20230522
